FAERS Safety Report 12235250 (Version 1)
Quarter: 2016Q2

REPORT INFORMATION
  Report Type: Spontaneous
  Country: US (occurrence: US)
  Receive Date: 20160404
  Receipt Date: 20160404
  Transmission Date: 20160815
  Serious: No
  Sender: FDA-Public Use
  Company Number: US-TARO-2015TAR00926

PATIENT
  Age: 70 Year
  Sex: Female
  Weight: 60.77 kg

DRUGS (3)
  1. LOW DOSE ASPIRIN [Concomitant]
     Active Substance: ASPIRIN
  2. SIMVASTATIN. [Concomitant]
     Active Substance: SIMVASTATIN
  3. FLUOROURACIL TOPICAL CREAM USP 5% [Suspect]
     Active Substance: FLUOROURACIL
     Indication: SKIN CANCER
     Dosage: 1 G, 2X/DAY TO LEFT TEMPLE
     Route: 061
     Dates: start: 201509

REACTIONS (1)
  - Drug ineffective [Not Recovered/Not Resolved]

NARRATIVE: CASE EVENT DATE: 201509
